FAERS Safety Report 5700734-2 (Version None)
Quarter: 2008Q2

REPORT INFORMATION
  Report Type: 
  Country: None (occurrence: None)
  Receive Date: 20080410
  Receipt Date: 20080204
  Transmission Date: 20081010
  Serious: No
  Sender: FDA-Public Use
  Company Number: A0707150A

PATIENT
  Age: 59 Year
  Sex: Female

DRUGS (7)
  1. TYKERB [Suspect]
     Indication: BREAST CANCER
     Dosage: 1250MG PER DAY
     Route: 048
     Dates: start: 20071029, end: 20080112
  2. XELODA [Suspect]
     Dosage: 1000MG PER DAY
     Dates: start: 20071028, end: 20071221
  3. CALCIUM [Concomitant]
  4. MULTI-VITAMIN [Concomitant]
  5. CALTRATE [Concomitant]
  6. VIT C [Concomitant]
  7. GLUCOSAMINE [Concomitant]

REACTIONS (7)
  - BLOOD CHOLESTEROL INCREASED [None]
  - BLOOD TRIGLYCERIDES INCREASED [None]
  - ERYTHEMA [None]
  - FEELING HOT [None]
  - OEDEMA PERIPHERAL [None]
  - PAIN IN EXTREMITY [None]
  - PARAESTHESIA [None]
